FAERS Safety Report 14851126 (Version 1)
Quarter: 2018Q2

REPORT INFORMATION
  Report Type: Report from Study
  Country: US (occurrence: US)
  Receive Date: 20180507
  Receipt Date: 20180507
  Transmission Date: 20180711
  Serious: Yes (Other)
  Sender: FDA-Public Use
  Company Number: US-ROCHE-2117933

PATIENT
  Sex: Female

DRUGS (1)
  1. LUCENTIS [Suspect]
     Active Substance: RANIBIZUMAB
     Indication: PRODUCT USED FOR UNKNOWN INDICATION
     Dosage: ONGOING: NO
     Route: 065

REACTIONS (8)
  - Foreign body sensation in eyes [Unknown]
  - Eye pain [Unknown]
  - Ocular discomfort [Unknown]
  - Ill-defined disorder [Unknown]
  - Visual field defect [Unknown]
  - Balance disorder [Unknown]
  - Drug ineffective [Unknown]
  - Blindness [Unknown]
